FAERS Safety Report 17931519 (Version 2)
Quarter: 2020Q3

REPORT INFORMATION
  Report Type: Report from Study
  Country: CA (occurrence: CA)
  Receive Date: 20200623
  Receipt Date: 20200710
  Transmission Date: 20201103
  Serious: Yes (Other)
  Sender: FDA-Public Use
  Company Number: CA-JNJFOC-20200624022

PATIENT
  Age: 15 Year
  Sex: Male
  Weight: 31.5 kg

DRUGS (3)
  1. REMICADE [Suspect]
     Active Substance: INFLIXIMAB
     Indication: CROHN^S DISEASE
     Route: 042
     Dates: start: 20200508
  2. METHOTREXATE. [Concomitant]
     Active Substance: METHOTREXATE
     Indication: CROHN^S DISEASE
     Dosage: 5 DOSAGE FORMS
     Route: 048
  3. REMICADE [Suspect]
     Active Substance: INFLIXIMAB
     Route: 042
     Dates: start: 2020

REACTIONS (5)
  - Infusion related reaction [Unknown]
  - Product use issue [Unknown]
  - Off label use [Unknown]
  - Crohn^s disease [Unknown]
  - Pruritus [Unknown]

NARRATIVE: CASE EVENT DATE: 2020
